FAERS Safety Report 8996958 (Version 1)
Quarter: 2012Q4

REPORT INFORMATION
  Report Type: Spontaneous
  Country: GB (occurrence: None)
  Receive Date: 20121220
  Receipt Date: 20121220
  Transmission Date: 20130627
  Serious: Yes (Hospitalization)
  Sender: FDA-Public Use
  Company Number: GB-DEXPHARM-20121852

PATIENT
  Age: 67 Year
  Sex: Male

DRUGS (1)
  1. OMEPRAZOLE [Suspect]
     Indication: GASTROOESOPHAGEAL REFLUX DISEASE
     Dates: end: 20120626

REACTIONS (12)
  - Hypocalcaemia [None]
  - Hypokalaemia [None]
  - Hypomagnesaemia [None]
  - Abdominal pain lower [None]
  - Diarrhoea [None]
  - Vomiting [None]
  - Paraesthesia [None]
  - Tetany [None]
  - Convulsion [None]
  - Hyperparathyroidism secondary [None]
  - Encephalopathy [None]
  - Food intolerance [None]
